FAERS Safety Report 14178486 (Version 1)
Quarter: 2017Q4

REPORT INFORMATION
  Report Type: Report from Study
  Country: ZA (occurrence: ZA)
  Receive Date: 20171110
  Receipt Date: 20171110
  Transmission Date: 20180321
  Serious: Yes (Death, Hospitalization, Other)
  Sender: FDA-Public Use
  Company Number: ZA-AMGEN-ZAFSL2017169606

PATIENT
  Age: 49 Year
  Sex: Male

DRUGS (2)
  1. ARANESP [Suspect]
     Active Substance: DARBEPOETIN ALFA
     Indication: CHRONIC KIDNEY DISEASE
  2. ARANESP [Suspect]
     Active Substance: DARBEPOETIN ALFA
     Indication: ANAEMIA
     Dosage: 80 MCG, Q2WK
     Route: 058
     Dates: start: 201509, end: 201707

REACTIONS (3)
  - Cerebrovascular accident [Unknown]
  - Road traffic accident [Unknown]
  - Death [Fatal]

NARRATIVE: CASE EVENT DATE: 20170706
